FAERS Safety Report 22659654 (Version 1)
Quarter: 2023Q2

REPORT INFORMATION
  Report Type: Spontaneous
  Country: US (occurrence: None)
  Receive Date: 20230630
  Receipt Date: 20230630
  Transmission Date: 20230722
  Serious: Yes (Other)
  Sender: FDA-Public Use
  Company Number: None

PATIENT
  Age: 59 Year
  Sex: Female

DRUGS (1)
  1. REPATHA [Suspect]
     Active Substance: EVOLOCUMAB
     Dosage: RAPATHA SRCLK 140MG/ML Q 2 WEEKS SC
     Route: 058

REACTIONS (4)
  - Vertigo [None]
  - Nausea [None]
  - Cardiovascular symptom [None]
  - Therapy interrupted [None]

NARRATIVE: CASE EVENT DATE: 20230628
